FAERS Safety Report 6717453-6 (Version None)
Quarter: 2010Q2

REPORT INFORMATION
  Report Type: 
  Country: None (occurrence: None)
  Receive Date: 20100503
  Receipt Date: 20100419
  Transmission Date: 20101027
  Serious: Yes (Other)
  Sender: FDA-Public Use
  Company Number: 7001862

PATIENT
  Age: 46 Year
  Sex: Female

DRUGS (4)
  1. REBIF [Suspect]
     Indication: MULTIPLE SCLEROSIS
     Dosage: 44 MCG, 1 IN 3 M, SUBCUTANEOUS
     Route: 058
     Dates: start: 20090101, end: 20091201
  2. VIRAPAMIL (VERAPAMIL) [Concomitant]
  3. DIGOXIN [Concomitant]
  4. DITROPAN XL [Concomitant]

REACTIONS (4)
  - CAPILLARY DISORDER [None]
  - DIABETES MELLITUS [None]
  - MULTIPLE SCLEROSIS RELAPSE [None]
  - RASH [None]
